FAERS Safety Report 10736180 (Version 1)
Quarter: 2015Q1

REPORT INFORMATION
  Report Type: Spontaneous
  Country: US (occurrence: None)
  Receive Date: 20150122
  Receipt Date: 20150122
  Transmission Date: 20150721
  Serious: Yes (Other)
  Sender: FDA-Public Use
  Company Number: None

PATIENT
  Age: 64 Year
  Sex: Female
  Weight: 68.95 kg

DRUGS (2)
  1. LEVOFLOXACIN 500 MG [Suspect]
     Active Substance: LEVOFLOXACIN
     Indication: SINUSITIS BACTERIAL
     Route: 048
     Dates: start: 20150118, end: 20150120
  2. LEVOFLOXACIN 500 MG [Suspect]
     Active Substance: LEVOFLOXACIN
     Route: 048
     Dates: start: 20150118, end: 20150120

REACTIONS (10)
  - Diarrhoea [None]
  - Confusional state [None]
  - Judgement impaired [None]
  - Rash erythematous [None]
  - Amnesia [None]
  - Balance disorder [None]
  - Dizziness [None]
  - Headache [None]
  - Hallucination, visual [None]
  - Cognitive disorder [None]

NARRATIVE: CASE EVENT DATE: 20150120
